FAERS Safety Report 4362768-2 (Version None)
Quarter: 2004Q2

REPORT INFORMATION
  Report Type: 
  Country: None (occurrence: None)
  Receive Date: 20040518
  Receipt Date: 20040505
  Transmission Date: 20050107
  Serious: Yes (Hospitalization)
  Sender: FDA-Public Use
  Company Number: 04P-163-0259894-00

PATIENT
  Age: 19 Year
  Sex: Female

DRUGS (12)
  1. NORVIR [Suspect]
     Indication: HIV INFECTION
     Dosage: 200 MG, 1 IN 1 D, PER ORAL
     Route: 048
     Dates: start: 20031219
  2. FOSAMPRENAVIR [Concomitant]
  3. ZIDOVUDINE W/LAMIVUDINE [Concomitant]
  4. ZIDOVUDINE [Concomitant]
  5. ALBUTEROL SULFATE [Concomitant]
  6. CEFTRIAXONE [Concomitant]
  7. DEXAMETHASONE [Concomitant]
  8. PANTOPRAZOLE [Concomitant]
  9. TRIMETHOPRIM + SULFAMETHOXAZOLE [Concomitant]
  10. PRENATAL MEDICATIONS [Concomitant]
  11. HYDROMORPHONE HYDROCHLORIDE [Concomitant]
  12. AZITHROMYCIN [Concomitant]

REACTIONS (5)
  - COMPLICATIONS OF MATERNAL EXPOSURE TO THERAPEUTIC DRUGS [None]
  - HERPES VIRUS INFECTION [None]
  - OLIGOHYDRAMNIOS [None]
  - PNEUMONITIS [None]
  - PREMATURE LABOUR [None]
